FAERS Safety Report 19753789 (Version 1)
Quarter: 2021Q3

REPORT INFORMATION
  Report Type: Report from Study
  Country: None (occurrence: KW)
  Receive Date: 20210826
  Receipt Date: 20210826
  Transmission Date: 20211014
  Serious: Yes (Death, Hospitalization)
  Sender: FDA-Public Use
  Company Number: KW-ABBVIE-21K-091-4056587-00

PATIENT
  Sex: Male

DRUGS (1)
  1. HUMIRA [Suspect]
     Active Substance: ADALIMUMAB
     Indication: RHEUMATOID ARTHRITIS
     Route: 058
     Dates: start: 20080605, end: 20210722

REACTIONS (2)
  - Dyspnoea [Fatal]
  - Coronavirus test positive [Fatal]

NARRATIVE: CASE EVENT DATE: 20210727
